FAERS Safety Report 24789855 (Version 1)
Quarter: 2024Q4

REPORT INFORMATION
  Report Type: Spontaneous
  Country: FR (occurrence: FR)
  Receive Date: 20241230
  Receipt Date: 20241230
  Transmission Date: 20250115
  Serious: Yes (Other)
  Sender: IMMUNOCORE
  Company Number: None

PATIENT

DRUGS (1)
  1. TEBENTAFUSP [Suspect]
     Active Substance: TEBENTAFUSP
     Indication: Choroid melanoma
     Dosage: 20 MILLIGRAM
     Dates: start: 20241216

REACTIONS (1)
  - Kaposi sarcoma inflammatory cytokine syndrome [Not Recovered/Not Resolved]

NARRATIVE: CASE EVENT DATE: 20241216
